FAERS Safety Report 5807622-1 (Version None)
Quarter: 2008Q3

REPORT INFORMATION
  Report Type: 
  Country: None (occurrence: None)
  Receive Date: 20080708
  Receipt Date: 20080624
  Transmission Date: 20090109
  Serious: Yes (Other)
  Sender: FDA-Public Use
  Company Number: 062-20785-08070096

PATIENT

DRUGS (4)
  1. THALIDOMIDE [Suspect]
     Indication: MULTIPLE MYELOMA
     Dosage: 100MG DAILY W/TITRATION UP TO 400 MG, ORAL
     Route: 048
  2. DEXAMETHASONE TAB [Suspect]
     Indication: MULTIPLE MYELOMA
     Dosage: 40 MG, ON DAYS 1-4, 15-18, INTRAVENOUS
     Route: 042
  3. IDARUBICIN HCL [Suspect]
     Indication: MULTIPLE MYELOMA
     Dosage: 8-10MG/M2, ON DAYS 1-4, OCCLUSIVE DRESSING TECHNIQUE
  4. CYCLOPHOSPHAMIDE [Suspect]
     Indication: MULTIPLE MYELOMA
     Dosage: 200 MG/M2 ON DAYS 1-4, UNKNOWN

REACTIONS (12)
  - CONSTIPATION [None]
  - DEHYDRATION [None]
  - DIARRHOEA [None]
  - FALL [None]
  - HAEMATOTOXICITY [None]
  - HAEMORRHAGE [None]
  - MUCOSAL INFLAMMATION [None]
  - NAUSEA [None]
  - PNEUMONIA [None]
  - PULMONARY EMBOLISM [None]
  - SEPSIS [None]
  - SYNCOPE [None]
